FAERS Safety Report 9037965 (Version 1)
Quarter: 2013Q1

REPORT INFORMATION
  Report Type: Report from Study
  Country: US (occurrence: US)
  Receive Date: 20130129
  Receipt Date: 20130129
  Transmission Date: 20140127
  Serious: No
  Sender: FDA-Public Use
  Company Number: US-ABBOTT-11P-163-0866664-00

PATIENT
  Age: 61 Year
  Sex: Female

DRUGS (13)
  1. HUMIRA 40 MG/0.8 ML PEN [Suspect]
     Indication: RHEUMATOID ARTHRITIS
     Dates: start: 201108
  2. HUMIRA 40 MG/0.8 ML PEN [Suspect]
     Dosage: 40 MG WEEKLY
  3. METHOTREXATE [Concomitant]
     Indication: PRODUCT USED FOR UNKNOWN INDICATION
  4. AMITIZA [Concomitant]
     Indication: IRRITABLE BOWEL SYNDROME
     Dosage: BID
  5. KLONOPIN [Concomitant]
     Indication: ANXIETY
     Dosage: DAILY
  6. WELLBUTRIN [Concomitant]
     Indication: DEPRESSION
     Dosage: DAILY
  7. LAMOTRIGINE [Concomitant]
     Indication: DEPRESSION
     Dosage: DAILY
  8. LATUDA [Concomitant]
     Indication: DEPRESSION
     Dosage: DAILY
  9. THYROXINE [Concomitant]
     Indication: HYPOTHYROIDISM
     Dosage: DAILY
  10. NEXIUM [Concomitant]
     Indication: GASTROOESOPHAGEAL REFLUX DISEASE
     Dosage: DAILY
  11. WARFARIN [Concomitant]
     Indication: PULMONARY EMBOLISM
     Dosage: DAILY
  12. BONIVA [Concomitant]
     Indication: OSTEOPOROSIS
  13. LISINOPRIL [Concomitant]
     Indication: HYPERTENSION
     Dosage: DAILY

REACTIONS (2)
  - Burning sensation [Recovered/Resolved]
  - Drug ineffective [Not Recovered/Not Resolved]
